FAERS Safety Report 5336718-6 (Version None)
Quarter: 2007Q2

REPORT INFORMATION
  Report Type: 
  Country: None (occurrence: None)
  Receive Date: 20070529
  Receipt Date: 20070518
  Transmission Date: 20071010
  Serious: Yes (Life-Threatening, Other)
  Sender: FDA-Public Use
  Company Number: US-BAYER-200711599BWH

PATIENT
  Sex: Male

DRUGS (1)
  1. TRASYLOL [Suspect]
     Indication: SURGERY
     Dates: start: 20050518

REACTIONS (7)
  - ADVERSE EVENT [None]
  - ANAPHYLACTIC SHOCK [None]
  - COMA [None]
  - MYOCARDIAL INFARCTION [None]
  - RENAL FAILURE [None]
  - RESPIRATORY FAILURE [None]
  - UNEVALUABLE EVENT [None]
